FAERS Safety Report 17462123 (Version 2)
Quarter: 2021Q2

REPORT INFORMATION
  Report Type: Report from Study
  Country: None (occurrence: US)
  Receive Date: 20200226
  Receipt Date: 20210505
  Transmission Date: 20210716
  Serious: Yes (Other)
  Sender: FDA-Public Use
  Company Number: US-ABBVIE-20P-163-3291025-00

PATIENT
  Sex: Female

DRUGS (6)
  1. IMBRUVICA [Suspect]
     Active Substance: IBRUTINIB
     Indication: CHRONIC LYMPHOCYTIC LEUKAEMIA
     Route: 048
     Dates: start: 20191108
  2. MODERNA COVID?19 VACCINE [Suspect]
     Active Substance: CX-024414
     Dosage: MODERNA?SECOND DOSE
     Route: 030
  3. IMBRUVICA [Suspect]
     Active Substance: IBRUTINIB
     Route: 048
  4. IMBRUVICA [Suspect]
     Active Substance: IBRUTINIB
     Indication: CHRONIC LYMPHOCYTIC LEUKAEMIA
     Route: 048
     Dates: start: 202010
  5. MODERNA COVID?19 VACCINE [Suspect]
     Active Substance: CX-024414
     Indication: COVID-19 IMMUNISATION
     Dosage: MODERNA?FIRST DOSE
     Route: 030
  6. IMBRUVICA [Suspect]
     Active Substance: IBRUTINIB
     Route: 048

REACTIONS (20)
  - Lymphadenopathy [Unknown]
  - Weight increased [Unknown]
  - Skin texture abnormal [Unknown]
  - Injection site pruritus [Recovering/Resolving]
  - Arthralgia [Unknown]
  - Onychoclasis [Unknown]
  - Squamous cell carcinoma of skin [Unknown]
  - Osteopenia [Unknown]
  - Contusion [Unknown]
  - Nausea [Unknown]
  - Pulmonary oedema [Recovering/Resolving]
  - Skin irritation [Unknown]
  - Pruritus [Unknown]
  - Chills [Recovered/Resolved]
  - Vaccination site pain [Unknown]
  - Injection site erythema [Recovering/Resolving]
  - Injection site swelling [Recovering/Resolving]
  - Epistaxis [Unknown]
  - Photodermatosis [Unknown]
  - Diarrhoea [Unknown]
